FAERS Safety Report 17674070 (Version 1)
Quarter: 2020Q2

REPORT INFORMATION
  Report Type: Spontaneous
  Country: US (occurrence: US)
  Receive Date: 20200416
  Receipt Date: 20200416
  Transmission Date: 20200714
  Serious: No
  Sender: FDA-Public Use
  Company Number: US-TEVA-2018-US-905524

PATIENT
  Age: 29 Year
  Sex: Female

DRUGS (6)
  1. HYDROMORPHONE [Suspect]
     Active Substance: HYDROMORPHONE
     Indication: PAIN IN EXTREMITY
     Dosage: PCA DOSE 0.2MG
     Route: 050
  2. ACETAMINOPHEN. [Suspect]
     Active Substance: ACETAMINOPHEN
     Indication: PAIN IN EXTREMITY
     Route: 065
  3. KETAMINE [Suspect]
     Active Substance: KETAMINE
     Indication: PAIN IN EXTREMITY
     Route: 050
  4. HYDROMORPHONE [Suspect]
     Active Substance: HYDROMORPHONE
     Indication: PAIN IN EXTREMITY
     Dosage: PCA LOADING DOSE 1.5 MG
     Route: 050
  5. KETAMINE [Suspect]
     Active Substance: KETAMINE
     Indication: PAIN IN EXTREMITY
     Route: 050
  6. OXYCODONE [Suspect]
     Active Substance: OXYCODONE
     Indication: PAIN IN EXTREMITY
     Route: 065

REACTIONS (1)
  - Maternal exposure during pregnancy [Unknown]
